FAERS Safety Report 6732632-X (Version None)
Quarter: 2010Q2

REPORT INFORMATION
  Report Type: 
  Country: None (occurrence: None)
  Receive Date: 20100514
  Receipt Date: 20100504
  Transmission Date: 20101027
  Serious: Yes (Hospitalization)
  Sender: FDA-Public Use
  Company Number: B0652377A

PATIENT
  Age: 56 Year
  Sex: Male

DRUGS (6)
  1. LAMOTRIGINE [Suspect]
     Indication: EPILEPSY
     Dosage: 100 MG / PER DAY /
  2. ROPINIROLE [Concomitant]
  3. STALEVO 100 [Concomitant]
  4. CO-CARELDOPA [Concomitant]
  5. CLOPIDOGREL [Concomitant]
  6. CITALOPRAM HYDROBROMIDE [Concomitant]

REACTIONS (4)
  - AGITATION [None]
  - DYSKINESIA [None]
  - HYPERKINESIA [None]
  - INSOMNIA [None]
